FAERS Safety Report 22183757 (Version 2)
Quarter: 2023Q2

REPORT INFORMATION
  Report Type: Spontaneous
  Country: FR (occurrence: FR)
  Receive Date: 20230406
  Receipt Date: 20230419
  Transmission Date: 20230722
  Serious: Yes (Other)
  Sender: FDA-Public Use
  Company Number: None

PATIENT
  Age: 88 Year
  Sex: Female
  Weight: 44 kg

DRUGS (2)
  1. AZTREONAM LYSINE [Suspect]
     Active Substance: AZTREONAM LYSINE
     Indication: Pyelonephritis acute
     Dosage: 1G TROIS FOIS PAR JOUR
     Route: 042
     Dates: start: 20220727, end: 20220805
  2. AZACTAM [Suspect]
     Active Substance: AZTREONAM
     Indication: Pyelonephritis acute
     Dosage: 1G TROIS FOIS PAR JOUR
     Route: 042
     Dates: start: 20220727, end: 20220805

REACTIONS (1)
  - Agranulocytosis [Recovered/Resolved]

NARRATIVE: CASE EVENT DATE: 20220818
